FAERS Safety Report 5652244-9 (Version None)
Quarter: 2008Q1

REPORT INFORMATION
  Report Type: 
  Country: None (occurrence: None)
  Receive Date: 20080305
  Receipt Date: 20080207
  Transmission Date: 20080703
  Serious: No
  Sender: FDA-Public Use
  Company Number: US-BOEHRINGER INGELHEIM GMBH, GERMANY-2007-BP-24621BP

PATIENT
  Sex: Male
  Weight: 123 kg

DRUGS (10)
  1. SPIRIVA [Suspect]
     Indication: CHRONIC OBSTRUCTIVE PULMONARY DISEASE
     Route: 055
     Dates: start: 20061101, end: 20071101
  2. SPIRIVA [Suspect]
     Indication: ASTHMA
  3. SPIRIVA [Suspect]
     Indication: ASBESTOSIS
  4. HYTRIN [Concomitant]
     Indication: HYPERTENSION
     Dates: start: 20070719, end: 20071227
  5. HYTRIN [Concomitant]
     Indication: BENIGN PROSTATIC HYPERPLASIA
  6. ALBUTEROL [Concomitant]
     Indication: ASTHMA
  7. ALBUTEROL [Concomitant]
     Indication: CHRONIC OBSTRUCTIVE PULMONARY DISEASE
  8. ADVAIR DISKUS 100/50 [Concomitant]
     Dates: start: 20070701, end: 20071101
  9. SINGULAIR [Concomitant]
     Dates: start: 20070913
  10. PROAIR HFA [Concomitant]

REACTIONS (1)
  - NOCTURIA [None]
